FAERS Safety Report 23186821 (Version 2)
Quarter: 2024Q1

REPORT INFORMATION
  Report Type: Spontaneous
  Country: US (occurrence: US)
  Receive Date: 20231115
  Receipt Date: 20240103
  Transmission Date: 20240410
  Serious: Yes (Other)
  Sender: FDA-Public Use
  Company Number: US-ORGANON-O2311USA001379

PATIENT
  Sex: Female
  Weight: 62.8 kg

DRUGS (1)
  1. NEXPLANON [Suspect]
     Active Substance: ETONOGESTREL
     Indication: Contraception
     Dosage: 1 IMPLANT 68 MG  IN LEFT UPPER ARM ONCE A 3 YEARS
     Route: 059
     Dates: start: 202306, end: 20231115

REACTIONS (5)
  - Device dislocation [Recovered/Resolved]
  - Device issue [Recovered/Resolved]
  - Implant site pain [Recovered/Resolved]
  - Device deployment issue [Recovered/Resolved]
  - Complication associated with device [Recovered/Resolved]

NARRATIVE: CASE EVENT DATE: 20230101
